FAERS Safety Report 13317711 (Version 8)
Quarter: 2018Q1

REPORT INFORMATION
  Report Type: Spontaneous
  Country: US (occurrence: US)
  Receive Date: 20170310
  Receipt Date: 20180329
  Transmission Date: 20180508
  Serious: Yes (Other)
  Sender: FDA-Public Use
  Company Number: US-PFIZER INC-2017095478

PATIENT
  Age: 63 Year
  Sex: Female
  Weight: 57.14 kg

DRUGS (3)
  1. ROSUVASTATIN CALCIUM. [Concomitant]
     Active Substance: ROSUVASTATIN CALCIUM
     Indication: BLOOD CHOLESTEROL INCREASED
     Dosage: 20 MG, 1X/DAY (AT NIGHT)
     Route: 048
  2. XELJANZ XR [Suspect]
     Active Substance: TOFACITINIB CITRATE
     Indication: RHEUMATOID ARTHRITIS
     Dosage: 11 MG, 1X/DAY
  3. XELJANZ XR [Suspect]
     Active Substance: TOFACITINIB CITRATE
     Dosage: 11 MG, 1X/DAY
     Route: 048

REACTIONS (14)
  - Weight increased [Unknown]
  - Cough [Not Recovered/Not Resolved]
  - Fatigue [Unknown]
  - Joint swelling [Unknown]
  - Ear infection [Unknown]
  - Neoplasm malignant [Not Recovered/Not Resolved]
  - Functional gastrointestinal disorder [Unknown]
  - Influenza [Not Recovered/Not Resolved]
  - Pain in extremity [Unknown]
  - Tooth fracture [Unknown]
  - Nausea [Unknown]
  - Malaise [Unknown]
  - Osteopenia [Unknown]
  - Lentigo [Unknown]

NARRATIVE: CASE EVENT DATE: 201802
